FAERS Safety Report 8083127-5 (Version None)
Quarter: 2012Q1

REPORT INFORMATION
  Report Type: 
  Country: None (occurrence: None)
  Receive Date: 20120130
  Receipt Date: 20120119
  Transmission Date: 20120608
  Serious: Yes (Hospitalization, Other)
  Sender: FDA-Public Use
  Company Number: US-ASTRAZENECA-2010SE37902

PATIENT
  Age: 57 Year
  Sex: Female
  Weight: 77.1 kg

DRUGS (34)
  1. SEROQUEL [Suspect]
     Dosage: 200 AND ONE AND A HALF MG IN THE MORNING AND ANOTHER 200 AND ONE AND A HALF MG IN THE EVENING.
     Route: 048
     Dates: start: 20091101, end: 20110601
  2. SEROQUEL [Suspect]
     Dosage: SEROQUEL TWO TABLETS AND HALF OF 200 MG AT BEDTIME
     Route: 048
  3. SEROQUEL [Suspect]
     Dosage: SEROQUEL TWO TABLETS AND HALF OF 200 MG AT BEDTIME
     Route: 048
  4. ATIVAN [Concomitant]
  5. SEROQUEL [Suspect]
     Dosage: 200 AND ONE AND A HALF MG IN THE MORNING AND ANOTHER 200 AND ONE AND A HALF MG IN THE EVENING.
     Route: 048
     Dates: start: 20091101, end: 20110601
  6. SEROQUEL [Suspect]
     Route: 048
     Dates: start: 20110101
  7. TEMAZEPAM [Concomitant]
  8. PEPCID [Concomitant]
  9. SEROQUEL [Suspect]
     Indication: BIPOLAR I DISORDER
     Dosage: 200 AND ONE AND A HALF MG IN THE MORNING AND ANOTHER 200 AND ONE AND A HALF MG IN THE EVENING.
     Route: 048
     Dates: start: 20090101
  10. SEROQUEL [Suspect]
     Route: 048
     Dates: start: 20110101
  11. SEROQUEL [Suspect]
     Dosage: SEROQUEL TWO TABLETS AND HALF OF 200 MG AT BEDTIME
     Route: 048
  12. SEROQUEL [Suspect]
     Route: 048
  13. SEROQUEL [Suspect]
     Route: 048
  14. SEROQUEL [Suspect]
     Route: 048
  15. SEROQUEL [Suspect]
     Route: 048
  16. SEROQUEL [Suspect]
     Route: 048
  17. PROZAC [Concomitant]
  18. NADOLOL [Concomitant]
  19. SEROQUEL [Suspect]
     Route: 048
     Dates: start: 20110101
  20. SEROQUEL [Suspect]
     Dosage: SEROQUEL TWO TABLETS AND HALF OF 200 MG AT BEDTIME
     Route: 048
  21. OXYCODONE HCL [Concomitant]
  22. TRAMADOL HCL [Concomitant]
  23. FIORICET [Concomitant]
  24. SEROQUEL [Suspect]
     Indication: DEPRESSION
     Dosage: 200 AND ONE AND A HALF MG IN THE MORNING AND ANOTHER 200 AND ONE AND A HALF MG IN THE EVENING.
     Route: 048
     Dates: start: 20090101
  25. SEROQUEL [Suspect]
     Dosage: 200 AND ONE AND A HALF MG IN THE MORNING AND ANOTHER 200 AND ONE AND A HALF MG IN THE EVENING.
     Route: 048
     Dates: start: 20091101, end: 20110601
  26. SEROQUEL [Suspect]
     Route: 048
  27. SEROQUEL [Suspect]
     Dosage: 200 AND ONE AND A HALF MG IN THE MORNING AND ANOTHER 200 AND ONE AND A HALF MG IN THE EVENING.
     Route: 048
     Dates: start: 20091101, end: 20110601
  28. SEROQUEL [Suspect]
     Route: 048
     Dates: start: 20110101
  29. SEROQUEL [Suspect]
     Route: 048
  30. SEROQUEL [Suspect]
     Route: 048
  31. BACLOFIN [Concomitant]
  32. GAPANTIN [Concomitant]
  33. SEROQUEL [Suspect]
     Indication: ANXIETY
     Dosage: 200 AND ONE AND A HALF MG IN THE MORNING AND ANOTHER 200 AND ONE AND A HALF MG IN THE EVENING.
     Route: 048
     Dates: start: 20090101
  34. SEROQUEL [Suspect]
     Indication: INSOMNIA
     Dosage: 200 AND ONE AND A HALF MG IN THE MORNING AND ANOTHER 200 AND ONE AND A HALF MG IN THE EVENING.
     Route: 048
     Dates: start: 20090101

REACTIONS (22)
  - HALLUCINATION [None]
  - GASTRIC DISORDER [None]
  - THINKING ABNORMAL [None]
  - MALAISE [None]
  - HYPERHIDROSIS [None]
  - INSOMNIA [None]
  - OFF LABEL USE [None]
  - DRUG DOSE OMISSION [None]
  - FALL [None]
  - VOMITING [None]
  - UPPER LIMB FRACTURE [None]
  - HEAD INJURY [None]
  - DEPRESSION [None]
  - HEADACHE [None]
  - WRONG TECHNIQUE IN DRUG USAGE PROCESS [None]
  - WRIST FRACTURE [None]
  - RIB FRACTURE [None]
  - AMNESIA [None]
  - STRESS [None]
  - DEHYDRATION [None]
  - DYSPHEMIA [None]
  - DRUG WITHDRAWAL SYNDROME [None]
